FAERS Safety Report 6866905-7 (Version None)
Quarter: 2010Q3

REPORT INFORMATION
  Report Type: 
  Country: None (occurrence: None)
  Receive Date: 20100722
  Receipt Date: 20100722
  Transmission Date: 20110219
  Serious: Yes (Hospitalization, Disabling)
  Sender: FDA-Public Use
  Company Number: None

PATIENT
  Sex: Female
  Weight: 122.4712 kg

DRUGS (2)
  1. JANUVIA [Suspect]
     Indication: TYPE 2 DIABETES MELLITUS
     Dosage: 100MG ONCE DAILY ORAL
     Route: 048
     Dates: start: 20080201, end: 20100601
  2. JANUVIA [Suspect]

REACTIONS (2)
  - PAIN [None]
  - PANCREATITIS [None]
